FAERS Safety Report 6555529-7 (Version None)
Quarter: 2010Q1

REPORT INFORMATION
  Report Type: 
  Country: None (occurrence: None)
  Receive Date: 20100128
  Receipt Date: 20100125
  Transmission Date: 20100710
  Serious: Yes (Hospitalization)
  Sender: FDA-Public Use
  Company Number: FR-ROCHE-681193

PATIENT
  Sex: Male

DRUGS (4)
  1. BONIVA [Suspect]
     Indication: OSTEOPOROSIS
     Route: 048
     Dates: start: 20090131, end: 20090301
  2. BONIVA [Suspect]
     Route: 048
     Dates: start: 20090701
  3. ART 50 [Concomitant]
     Dosage: DOSE: IRREGULAR INTAKE
  4. LOVENOX [Concomitant]
     Dosage: DRUG: LOVENOX 0.4; DOSE: 2 PREVIOUS INJECTIONS

REACTIONS (2)
  - NEPHROTIC SYNDROME [None]
  - OEDEMA PERIPHERAL [None]
